FAERS Safety Report 6146142-4 (Version None)
Quarter: 2009Q2

REPORT INFORMATION
  Report Type: 
  Country: None (occurrence: None)
  Receive Date: 20090407
  Receipt Date: 20090326
  Transmission Date: 20091009
  Serious: Yes (Hospitalization, Other)
  Sender: FDA-Public Use
  Company Number: US-ROCHE-473405

PATIENT
  Sex: Female
  Weight: 68 kg

DRUGS (8)
  1. ACCUTANE [Suspect]
     Dosage: DOSAGE REGIMEN REPORTED AS: 20/MG AM - 40/MG PM.
     Route: 048
     Dates: start: 20001001, end: 20010301
  2. ACCUTANE [Suspect]
     Route: 048
     Dates: start: 20021201, end: 20030301
  3. ORTHO TRI-CYCLEN [Concomitant]
     Dosage: REPORTED AS: ORTHO TRI-CYCLIN.
  4. MOTRIN [Concomitant]
  5. COMPAZINE [Concomitant]
     Dates: start: 20001007
  6. LEVBID [Concomitant]
     Dates: start: 20030114
  7. TIGAN [Concomitant]
     Dates: start: 20030114
  8. PREVACID [Concomitant]
     Dates: start: 20030114

REACTIONS (26)
  - ABDOMINAL PAIN [None]
  - ABSCESS [None]
  - ANAEMIA [None]
  - BLOOD CHOLESTEROL INCREASED [None]
  - BLOOD TRIGLYCERIDES INCREASED [None]
  - COLITIS [None]
  - COLITIS ULCERATIVE [None]
  - CROHN'S DISEASE [None]
  - DEPRESSION [None]
  - DIARRHOEA [None]
  - DIVERTICULITIS [None]
  - EPSTEIN-BARR VIRUS INFECTION [None]
  - GASTRITIS [None]
  - GASTROENTERITIS [None]
  - HERPES SIMPLEX [None]
  - HYPOKALAEMIA [None]
  - INFLAMMATORY BOWEL DISEASE [None]
  - INTESTINAL HAEMORRHAGE [None]
  - INTESTINAL OBSTRUCTION [None]
  - INTESTINAL STENOSIS [None]
  - NEPHROLITHIASIS [None]
  - PLATELET COUNT INCREASED [None]
  - RECTAL HAEMORRHAGE [None]
  - SKIN FISSURES [None]
  - SLEEP DISORDER [None]
  - WHITE BLOOD CELL COUNT INCREASED [None]
